FAERS Safety Report 11982974 (Version 3)
Quarter: 2016Q2

REPORT INFORMATION
  Report Type: Spontaneous
  Country: US (occurrence: US)
  Receive Date: 20160201
  Receipt Date: 20160510
  Transmission Date: 20160815
  Serious: No
  Sender: FDA-Public Use
  Company Number: US-VIFOR (INTERNATIONAL) INC.-VIT-2016-00015

PATIENT
  Age: 74 Year
  Sex: Female
  Weight: 64 kg

DRUGS (2)
  1. MIRCERA [Suspect]
     Active Substance: METHOXY POLYETHYLENE GLYCOL-EPOETIN BETA
     Indication: ANAEMIA
     Route: 042
     Dates: start: 20150713, end: 20150715
  2. HECTOROL [Concomitant]
     Active Substance: DOXERCALCIFEROL

REACTIONS (3)
  - Bone pain [Recovered/Resolved]
  - Myalgia [Recovered/Resolved]
  - Muscular weakness [Recovered/Resolved]

NARRATIVE: CASE EVENT DATE: 20150715
